FAERS Safety Report 4835924-4 (Version None)
Quarter: 2005Q4

REPORT INFORMATION
  Report Type: 
  Country: None (occurrence: None)
  Receive Date: 20051118
  Receipt Date: 20051114
  Transmission Date: 20060501
  Serious: Yes (Hospitalization)
  Sender: FDA-Public Use
  Company Number: T04-USA-03960-01

PATIENT
  Age: 90 Year
  Sex: Female
  Weight: 43.9989 kg

DRUGS (10)
  1. MEMANTINE HCL [Suspect]
     Indication: DEMENTIA ALZHEIMER'S TYPE
     Dosage: 20 MG QD PO
     Route: 048
     Dates: start: 20031217, end: 20040717
  2. MEMANTINE (OPEN LABEL, PHASE C) (MEMANTINE) [Suspect]
     Indication: DEMENTIA ALZHEIMER'S TYPE
     Dosage: 20 MG QD PO
     Route: 048
     Dates: start: 20021217, end: 20031216
  3. MEMANTINE (OPEN LABEL, PHASE B) (MEMANTINE) [Suspect]
     Indication: DEMENTIA ALZHEIMER'S TYPE
     Dosage: 20 MG QD PO
     Route: 048
     Dates: start: 20020703, end: 20021216
  4. MEMANTINE (DOUBLE BLIND, PHASE A) (MEMANTINE) [Suspect]
     Indication: DEMENTIA ALZHEIMER'S TYPE
     Dosage: 2 TABLET BID PO
     Route: 048
     Dates: start: 20020604, end: 20020702
  5. MEMANTINE (MEM-MD-02/UNBLINDED) (MEMANTINE) [Suspect]
     Indication: DEMENTIA ALZHEIMER'S TYPE
     Dates: start: 20011218, end: 20020603
  6. FUROSEMIDE [Concomitant]
  7. POTASSIUM [Concomitant]
  8. DONEPEZIL HCL [Concomitant]
  9. SERTRALINE HCL (SERTRALINE HYDROCHLORIDE) [Concomitant]
  10. QUETIAPINE [Concomitant]

REACTIONS (4)
  - BONE FRAGMENTATION [None]
  - FALL [None]
  - HIP FRACTURE [None]
  - PATHOLOGICAL FRACTURE [None]
